FAERS Safety Report 18381371 (Version 2)
Quarter: 2020Q4

REPORT INFORMATION
  Report Type: Spontaneous
  Country: JP (occurrence: JP)
  Receive Date: 20201014
  Receipt Date: 20201119
  Transmission Date: 20210114
  Serious: Yes (Death, Other)
  Sender: FDA-Public Use
  Company Number: JP-PFIZER INC-2020392241

PATIENT
  Age: 20 Year
  Sex: Male

DRUGS (10)
  1. LINEZOLID. [Suspect]
     Active Substance: LINEZOLID
     Dosage: 600 MG, 2X/DAY
     Route: 042
  2. TAZOBACTAM SODIUM AND PIPERACILLIN SODIUM [Suspect]
     Active Substance: PIPERACILLIN SODIUM\TAZOBACTAM SODIUM
     Indication: INFLUENZA
     Dosage: 4.5 G, 4X/DAY
  3. AZITHROMYCIN ANHYDROUS. [Suspect]
     Active Substance: AZITHROMYCIN ANHYDROUS
     Indication: SEPTIC SHOCK
  4. NORADRENALINE [NOREPINEPHRINE] [Suspect]
     Active Substance: NOREPINEPHRINE
     Indication: INFLUENZA
     Dosage: UNK (INFUSION)
  5. NORADRENALINE [NOREPINEPHRINE] [Suspect]
     Active Substance: NOREPINEPHRINE
     Indication: PNEUMONIA BACTERIAL
  6. AZITHROMYCIN ANHYDROUS. [Suspect]
     Active Substance: AZITHROMYCIN ANHYDROUS
     Indication: INFLUENZA
  7. TAZOBACTAM SODIUM AND PIPERACILLIN SODIUM [Suspect]
     Active Substance: PIPERACILLIN SODIUM\TAZOBACTAM SODIUM
     Indication: SEPTIC SHOCK
  8. TAZOBACTAM SODIUM AND PIPERACILLIN SODIUM [Suspect]
     Active Substance: PIPERACILLIN SODIUM\TAZOBACTAM SODIUM
     Indication: PNEUMONIA BACTERIAL
  9. AZITHROMYCIN ANHYDROUS. [Suspect]
     Active Substance: AZITHROMYCIN ANHYDROUS
     Indication: PNEUMONIA BACTERIAL
     Dosage: 500 MG, 1X/DAY
     Route: 042
  10. NORADRENALINE [NOREPINEPHRINE] [Suspect]
     Active Substance: NOREPINEPHRINE
     Indication: SEPTIC SHOCK

REACTIONS (2)
  - Respiratory failure [Fatal]
  - Drug ineffective [Unknown]
